FAERS Safety Report 9971230 (Version 1)
Quarter: 2014Q1

REPORT INFORMATION
  Report Type: Spontaneous
  Country: PL (occurrence: PL)
  Receive Date: 20140306
  Receipt Date: 20140306
  Transmission Date: 20141002
  Serious: Yes (Death, Other)
  Sender: FDA-Public Use
  Company Number: PHHY2014PL026607

PATIENT
  Age: 20 Year
  Sex: Female

DRUGS (10)
  1. DICLOFENAC [Suspect]
     Dosage: UNK
     Dates: start: 20061126, end: 20061127
  2. PARACETAMOL [Suspect]
     Dosage: UNK
     Dates: start: 20061126, end: 20061127
  3. HALOPERIDOL [Suspect]
     Dates: start: 20061127
  4. FUROSEMIDE [Suspect]
     Dates: start: 20061127
  5. SOLU-MEDROL [Concomitant]
     Dates: start: 20061126, end: 20061127
  6. DOLCONTRAL [Concomitant]
     Dates: start: 20061127
  7. LOSEC                                   /CAN/ [Concomitant]
     Dates: start: 20061126
  8. ZOFRAN [Concomitant]
  9. MANNITOL [Concomitant]
     Dates: start: 20061127
  10. BICARBONATE [Concomitant]
     Dates: start: 20061127

REACTIONS (10)
  - Cardiac failure acute [Fatal]
  - Pulmonary oedema [Fatal]
  - Cardiac arrest [Fatal]
  - Bradycardia [Fatal]
  - Foetal death [Unknown]
  - Neurological symptom [Unknown]
  - Coagulopathy [Unknown]
  - Angiopathy [Unknown]
  - Premature delivery [Unknown]
  - Maternal exposure during pregnancy [Unknown]
